FAERS Safety Report 6182331-0 (Version None)
Quarter: 2009Q2

REPORT INFORMATION
  Report Type: 
  Country: None (occurrence: None)
  Receive Date: 20090505
  Receipt Date: 20090505
  Transmission Date: 20091009
  Serious: No
  Sender: FDA-Public Use
  Company Number: None

PATIENT
  Age: 62 Year
  Sex: Female
  Weight: 58.9676 kg

DRUGS (2)
  1. OMEPRAZOLE [Suspect]
     Indication: ACNE
     Dosage: 1 CAPSULE EVERY A.M.
     Dates: start: 20090429, end: 20090502
  2. OMEPRAZOLE [Suspect]
     Indication: GASTROOESOPHAGEAL REFLUX DISEASE
     Dosage: 1 CAPSULE EVERY A.M.
     Dates: start: 20090429, end: 20090502

REACTIONS (4)
  - ABDOMINAL PAIN UPPER [None]
  - DIARRHOEA [None]
  - LIP SWELLING [None]
  - MALAISE [None]
